FAERS Safety Report 25890371 (Version 1)
Quarter: 2025Q4

REPORT INFORMATION
  Report Type: Report from Study
  Country: EU (occurrence: EU)
  Receive Date: 20251007
  Receipt Date: 20251007
  Transmission Date: 20260118
  Serious: Yes (Death, Hospitalization)
  Sender: ABBVIE
  Company Number: EU-ABBVIE-6490992

PATIENT
  Age: 85 Year
  Sex: Female

DRUGS (2)
  1. CARBIDOPA\LEVODOPA [Suspect]
     Active Substance: CARBIDOPA\LEVODOPA
     Indication: Parkinson^s disease
     Dosage: DAILY DOSE: 1,196 MG MD: 0.4ML+3ML CR: 3.1ML/H (6H), 2ML/H (18H) ED: 2.4ML
     Route: 050
     Dates: start: 20180924
  2. CARBIDOPA\LEVODOPA [Suspect]
     Active Substance: CARBIDOPA\LEVODOPA

REACTIONS (2)
  - Volvulus [Fatal]
  - General physical health deterioration [Fatal]
